FAERS Safety Report 4272620-9 (Version None)
Quarter: 2004Q1

REPORT INFORMATION
  Report Type: 
  Country: None (occurrence: None)
  Receive Date: 20040113
  Receipt Date: 20040113
  Transmission Date: 20041129
  Serious: Yes (Death)
  Sender: FDA-Public Use
  Company Number: None

PATIENT
  Age: 52 Year
  Sex: Male
  Weight: 98.8842 kg

DRUGS (7)
  1. PENTOSTATIN (9) MG/SUPRAGEN [Suspect]
     Indication: CHRONIC LYMPHOCYTIC LEUKAEMIA
     Dosage: 9 MG X 1 Q 21 DAYS IV
     Route: 042
     Dates: start: 20020701
  2. PENTOSTATIN (9) MG/SUPRAGEN [Suspect]
     Indication: CHRONIC LYMPHOCYTIC LEUKAEMIA
     Dosage: 9 MG X 1 Q 21 DAYS IV
     Route: 042
     Dates: start: 20020722
  3. PENTOSTATIN (9) MG/SUPRAGEN [Suspect]
     Indication: CHRONIC LYMPHOCYTIC LEUKAEMIA
     Dosage: 9 MG X 1 Q 21 DAYS IV
     Route: 042
     Dates: start: 20020812
  4. CYTOXAN [Concomitant]
  5. ZOFRAN [Concomitant]
  6. BACTRIM DS [Concomitant]
  7. ACYCLOVIR [Concomitant]

REACTIONS (12)
  - BIOPSY LIVER ABNORMAL [None]
  - BLOOD ALKALINE PHOSPHATASE INCREASED [None]
  - BLOOD BILIRUBIN INCREASED [None]
  - BODY TEMPERATURE INCREASED [None]
  - CARDIAC ARREST [None]
  - DRUG TOXICITY [None]
  - HAEMOGLOBIN DECREASED [None]
  - HEPATIC TRAUMA [None]
  - JAUNDICE [None]
  - LIVER FUNCTION TEST ABNORMAL [None]
  - LYMPHADENOPATHY [None]
  - URINARY TRACT DISORDER [None]
